FAERS Safety Report 15684243 (Version 1)
Quarter: 2018Q4

REPORT INFORMATION
  Report Type: Spontaneous
  Country: FR (occurrence: FR)
  Receive Date: 20181204
  Receipt Date: 20181204
  Transmission Date: 20190205
  Serious: Yes (Life-Threatening, Hospitalization, Congenital Anomaly, Other)
  Sender: FDA-Public Use
  Company Number: FR-CELLTRION INC.-2018FR024094

PATIENT

DRUGS (2)
  1. AZATHIOPRINE. [Suspect]
     Active Substance: AZATHIOPRINE
     Indication: CROHN^S DISEASE
     Dosage: 125 MG/DAY
     Route: 064
  2. INFLIXIMAB (UNKNOWN) [Suspect]
     Active Substance: INFLIXIMAB
     Indication: CROHN^S DISEASE
     Dosage: 5 MG/KG EVERY 8 WEEKS
     Route: 064

REACTIONS (13)
  - Respiratory distress [Recovered/Resolved]
  - Foetal heart rate abnormal [Recovered/Resolved]
  - Foetal exposure during pregnancy [Recovered/Resolved]
  - Bradycardia [Recovered/Resolved]
  - Foetal heart rate deceleration abnormality [Recovered/Resolved]
  - Lymphopenia [Recovered/Resolved]
  - Congenital toxoplasmosis [Recovered/Resolved]
  - Apnoea [Recovered/Resolved]
  - Hypoperfusion [Recovered/Resolved]
  - Tachypnoea [Recovered/Resolved]
  - Tachycardia foetal [Recovered/Resolved]
  - Hypogammaglobulinaemia [Recovered/Resolved]
  - Pyrexia [Recovered/Resolved]
